FAERS Safety Report 6949813-2 (Version None)
Quarter: 2010Q3

REPORT INFORMATION
  Report Type: 
  Country: None (occurrence: None)
  Receive Date: 20100828
  Receipt Date: 20100112
  Transmission Date: 20110219
  Serious: No
  Sender: FDA-Public Use
  Company Number: US-ABBOTT-10P-163-0619663-00

PATIENT
  Sex: Female
  Weight: 51.302 kg

DRUGS (3)
  1. NIASPAN [Suspect]
     Indication: BLOOD CHOLESTEROL INCREASED
     Dates: start: 20100111
  2. AMLODIPINE [Concomitant]
     Indication: HYPERTENSION
     Dates: start: 20091101
  3. ASPIRIN [Concomitant]
     Indication: PROPHYLAXIS
     Dates: start: 20100111

REACTIONS (3)
  - ILL-DEFINED DISORDER [None]
  - MUSCLE SPASMS [None]
  - NAUSEA [None]
